FAERS Safety Report 9312130 (Version 2)
Quarter: 2013Q2

REPORT INFORMATION
  Report Type: Spontaneous
  Country: JP (occurrence: JP)
  Receive Date: 20130528
  Receipt Date: 20130626
  Transmission Date: 20140414
  Serious: Yes (Hospitalization)
  Sender: FDA-Public Use
  Company Number: JP-BAXTER-2013BAX019238

PATIENT
  Age: 74 Year
  Sex: Male

DRUGS (13)
  1. ENDOXAN [Suspect]
     Indication: MANTLE CELL LYMPHOMA
     Route: 048
     Dates: start: 20130121, end: 20130307
  2. PREDNISOLONE [Suspect]
     Indication: MANTLE CELL LYMPHOMA
     Route: 048
     Dates: start: 20130122, end: 20130126
  3. PREDNISOLONE [Suspect]
     Route: 048
     Dates: start: 20130213, end: 20130217
  4. PREDNISOLONE [Suspect]
     Route: 048
     Dates: start: 20130305, end: 20130307
  5. RITUXIMAB [Suspect]
     Indication: MANTLE CELL LYMPHOMA
     Route: 065
     Dates: start: 20130121, end: 20130307
  6. DOXORUBICIN HYDROCHLORIDE [Suspect]
     Indication: MANTLE CELL LYMPHOMA
     Route: 065
     Dates: start: 20130121, end: 20130307
  7. VINCRISTINE SULFATE [Suspect]
     Indication: MANTLE CELL LYMPHOMA
     Route: 065
     Dates: start: 20130121, end: 20130307
  8. FEBURIC [Concomitant]
     Indication: MANTLE CELL LYMPHOMA
     Route: 048
     Dates: start: 20130121, end: 20130307
  9. FEBURIC [Concomitant]
     Route: 065
     Dates: start: 20130213, end: 20130217
  10. FEBURIC [Concomitant]
     Route: 065
     Dates: start: 20130305, end: 20130307
  11. FLUCONAZOLE [Concomitant]
     Indication: MANTLE CELL LYMPHOMA
     Route: 048
     Dates: start: 20130121, end: 20130307
  12. BAKTAR [Concomitant]
     Indication: MANTLE CELL LYMPHOMA
     Route: 048
     Dates: start: 20130121, end: 20130307
  13. OMEPRAL [Concomitant]
     Indication: MANTLE CELL LYMPHOMA
     Route: 048
     Dates: start: 20130121, end: 20130307

REACTIONS (1)
  - Substance-induced psychotic disorder [Not Recovered/Not Resolved]
